FAERS Safety Report 25794210 (Version 1)
Quarter: 2025Q3

REPORT INFORMATION
  Report Type: Spontaneous
  Country: US (occurrence: US)
  Receive Date: 20250912
  Receipt Date: 20250912
  Transmission Date: 20251021
  Serious: No
  Sender: BIOCON
  Company Number: US-BMS-IMIDS-REMS_SI-1757341378297

PATIENT
  Age: 88 Year
  Sex: Male

DRUGS (1)
  1. LENALIDOMIDE [Suspect]
     Active Substance: LENALIDOMIDE
     Indication: Product used for unknown indication
     Dates: start: 20250618

REACTIONS (5)
  - Brain fog [Unknown]
  - Muscle spasms [Unknown]
  - Weight decreased [Unknown]
  - Tremor [Unknown]
  - Dizziness [Unknown]

NARRATIVE: CASE EVENT DATE: 20250701
